FAERS Safety Report 5040452-X (Version None)
Quarter: 2006Q2

REPORT INFORMATION
  Report Type: 
  Country: None (occurrence: None)
  Receive Date: 20060627
  Receipt Date: 20060627
  Transmission Date: 20061013
  Serious: Yes (Other)
  Sender: FDA-Public Use
  Company Number: None

PATIENT
  Sex: Male
  Weight: 68.0396 kg

DRUGS (1)
  1. TAMSULOSIN 0.4 MG PO DAILY (ABBOTT) [Suspect]
     Indication: BENIGN PROSTATIC HYPERPLASIA
     Dosage: 0.4MG DAILY PO
     Route: 048
     Dates: start: 20060310, end: 20060503

REACTIONS (6)
  - DISEASE RECURRENCE [None]
  - DIZZINESS [None]
  - HYPOTENSION [None]
  - MICTURITION URGENCY [None]
  - POLLAKIURIA [None]
  - URINARY RETENTION [None]
